FAERS Safety Report 12776420 (Version 3)
Quarter: 2017Q2

REPORT INFORMATION
  Report Type: Report from Study
  Country: None (occurrence: US)
  Receive Date: 20160923
  Receipt Date: 20170613
  Transmission Date: 20170830
  Serious: Yes (Hospitalization, Other)
  Sender: FDA-Public Use
  Company Number: US-ABBVIE-16P-163-1698882-00

PATIENT
  Age: 39 Year
  Sex: Female

DRUGS (9)
  1. LUPRON DEPOT [Suspect]
     Active Substance: LEUPROLIDE ACETATE
     Indication: ADENOMYOSIS
  2. NORETHINDRONE ACETATE. [Concomitant]
     Active Substance: NORETHINDRONE ACETATE
     Indication: PRODUCT USED FOR UNKNOWN INDICATION
     Route: 048
     Dates: start: 20160707
  3. VALIUM [Concomitant]
     Active Substance: DIAZEPAM
     Indication: BLADDER SPASM
     Route: 048
  4. LEXAPRO [Concomitant]
     Active Substance: ESCITALOPRAM OXALATE
     Indication: MUSCLE SPASMS
     Route: 048
     Dates: start: 201601
  5. VITAMIN B12 [Concomitant]
     Active Substance: CYANOCOBALAMIN
     Indication: VITAMIN SUPPLEMENTATION
     Route: 048
  6. OXYCODONE [Concomitant]
     Active Substance: OXYCODONE
     Indication: PELVIC PAIN
     Route: 048
  7. LUPRON DEPOT [Suspect]
     Active Substance: LEUPROLIDE ACETATE
     Indication: ENDOMETRIOSIS
     Route: 050
     Dates: start: 20160707, end: 20160810
  8. MULTIVITAMIN [Concomitant]
     Active Substance: VITAMINS
     Indication: VITAMIN SUPPLEMENTATION
     Route: 048
  9. LUPRON DEPOT [Suspect]
     Active Substance: LEUPROLIDE ACETATE
     Indication: UTERINE POLYP

REACTIONS (26)
  - Dehydration [Unknown]
  - Urinary retention [Not Recovered/Not Resolved]
  - Fatigue [Recovering/Resolving]
  - Abdominal pain [Unknown]
  - Vomiting [Recovering/Resolving]
  - Memory impairment [Recovered/Resolved]
  - Cellulitis [Not Recovered/Not Resolved]
  - Cystitis [Recovered/Resolved]
  - Hypertension [Recovered/Resolved]
  - Drug withdrawal syndrome [Unknown]
  - Crying [Recovered/Resolved]
  - Arthralgia [Recovered/Resolved]
  - Confusional state [Recovered/Resolved]
  - Menstrual disorder [Recovered/Resolved]
  - Anxiety [Unknown]
  - Drug ineffective [Recovered/Resolved]
  - Abdominal pain [Recovered/Resolved]
  - Bone pain [Recovering/Resolving]
  - Flank pain [Unknown]
  - Pelvic pain [Recovering/Resolving]
  - Mood swings [Not Recovered/Not Resolved]
  - Injection site pain [Not Recovered/Not Resolved]
  - Abdominal abscess [Not Recovered/Not Resolved]
  - Kidney infection [Not Recovered/Not Resolved]
  - Depression [Recovered/Resolved]
  - Nausea [Recovering/Resolving]

NARRATIVE: CASE EVENT DATE: 201607
